FAERS Safety Report 7168302-6 (Version None)
Quarter: 2010Q4

REPORT INFORMATION
  Report Type: 
  Country: None (occurrence: None)
  Receive Date: 20101216
  Receipt Date: 20101209
  Transmission Date: 20110411
  Serious: Yes (Hospitalization)
  Sender: FDA-Public Use
  Company Number: US-US-EMD SERONO, INC.-232817J08USA

PATIENT
  Sex: Male
  Weight: 70 kg

DRUGS (14)
  1. REBIF [Suspect]
     Indication: MULTIPLE SCLEROSIS
     Route: 058
     Dates: start: 20030513, end: 20080401
  2. REBIF [Suspect]
     Route: 058
     Dates: start: 20080401
  3. REBIF [Suspect]
     Route: 058
     Dates: end: 20090101
  4. NIASPAN [Concomitant]
     Indication: BLOOD CHOLESTEROL INCREASED
     Route: 065
     Dates: start: 20060101
  5. RITALIN [Concomitant]
     Indication: SOMNOLENCE
     Route: 065
     Dates: start: 20070601
  6. BACLOFEN [Concomitant]
     Indication: MUSCLE SPASTICITY
     Route: 065
     Dates: start: 20070101, end: 20080312
  7. NEURONTIN [Concomitant]
     Indication: BACK PAIN
     Route: 065
     Dates: start: 20030101
  8. NEURONTIN [Concomitant]
     Indication: MULTIPLE SCLEROSIS
  9. TRAZODONE HCL [Concomitant]
     Indication: INSOMNIA
     Route: 065
     Dates: start: 20040101
  10. ASPIRIN [Concomitant]
     Indication: CARDIAC DISORDER
     Route: 065
  11. VITAMINS [Concomitant]
     Indication: VITAMIN SUPPLEMENTATION
     Route: 065
  12. PRIMROSE OIL [Concomitant]
     Indication: VITAMIN SUPPLEMENTATION
     Route: 065
     Dates: start: 20070101
  13. LIPITOR [Concomitant]
     Route: 065
     Dates: start: 20050101, end: 20060101
  14. KLOR-CON [Concomitant]
     Indication: ELECTROLYTE SUBSTITUTION THERAPY
     Route: 065

REACTIONS (4)
  - HEPATITIS [None]
  - HYPERTENSION [None]
  - HYPOTENSION [None]
  - VOMITING [None]
